FAERS Safety Report 13503566 (Version 1)
Quarter: 2017Q2

REPORT INFORMATION
  Report Type: Spontaneous
  Country: US (occurrence: US)
  Receive Date: 20170502
  Receipt Date: 20170502
  Transmission Date: 20170830
  Serious: No
  Sender: FDA-Public Use
  Company Number: None

PATIENT
  Age: 80 Year
  Sex: Male
  Weight: 73.55 kg

DRUGS (9)
  1. CIPROFLOXACIN HCL 500MG TAB [Suspect]
     Active Substance: CIPROFLOXACIN
     Indication: BACTERIAL INFECTION
     Route: 048
     Dates: start: 20170201, end: 20170220
  2. ASPIRIN. [Concomitant]
     Active Substance: ASPIRIN
  3. CIPROFLOXACIN HCL 500MG TAB [Suspect]
     Active Substance: CIPROFLOXACIN
     Indication: BIOPSY PROSTATE
     Route: 048
     Dates: start: 20170201, end: 20170220
  4. MULTI VITA [Concomitant]
  5. ALEVE [Concomitant]
     Active Substance: NAPROXEN SODIUM
  6. META MUSIR [Concomitant]
  7. BABY ASPIRIN [Concomitant]
     Active Substance: ASPIRIN
  8. PRAVASTATIN. [Concomitant]
     Active Substance: PRAVASTATIN
  9. VITA FUSION MENS VITAMIN [Concomitant]

REACTIONS (6)
  - Insomnia [None]
  - Arthralgia [None]
  - Musculoskeletal pain [None]
  - Tendon pain [None]
  - Myalgia [None]
  - Pain in extremity [None]
